FAERS Safety Report 13031457 (Version 1)
Quarter: 2016Q4

REPORT INFORMATION
  Report Type: Spontaneous
  Country: US (occurrence: US)
  Receive Date: 20161215
  Receipt Date: 20161215
  Transmission Date: 20170207
  Serious: No
  Sender: FDA-Public Use
  Company Number: US-AMGEN-USASP2016174271

PATIENT
  Age: 10 Year
  Sex: Female
  Weight: 27.66 kg

DRUGS (3)
  1. SOMATROPIN-AXP1006 [Suspect]
     Active Substance: SOMATROPIN
     Indication: PRODUCT USED FOR UNKNOWN INDICATION
     Dosage: 1.3 MG, QD
     Route: 058
  2. ENBREL [Suspect]
     Active Substance: ETANERCEPT
     Indication: JUVENILE IDIOPATHIC ARTHRITIS
     Dosage: 15 MG, QWK
     Route: 058
     Dates: end: 20161105
  3. ENBREL [Suspect]
     Active Substance: ETANERCEPT
     Dosage: 15 MG, QWK
     Route: 058
     Dates: start: 20161112

REACTIONS (2)
  - Decreased immune responsiveness [Recovered/Resolved]
  - Pharyngitis streptococcal [Recovered/Resolved]

NARRATIVE: CASE EVENT DATE: 201611
